FAERS Safety Report 14529258 (Version 1)
Quarter: 2018Q1

REPORT INFORMATION
  Report Type: Spontaneous
  Country: IT (occurrence: IT)
  Receive Date: 20180214
  Receipt Date: 20180214
  Transmission Date: 20180509
  Serious: Yes (Hospitalization)
  Sender: FDA-Public Use
  Company Number: IT-BAUSCH-BL-2018-003505

PATIENT
  Age: 31 Year
  Sex: Female

DRUGS (4)
  1. OKI [Suspect]
     Active Substance: KETOPROFEN LYSINE
     Indication: SCIATICA
     Dosage: GRANULES FOR ORAL SOLUTION
     Route: 048
     Dates: start: 20171129, end: 20171201
  2. DICLOFENAC [Suspect]
     Active Substance: DICLOFENAC
     Indication: SCIATICA
     Route: 048
  3. PENTACOL [Concomitant]
     Active Substance: MESALAMINE
     Indication: COLITIS ULCERATIVE
     Dosage: 4G/100ML, RECTAL SUSPENSION
     Route: 054
  4. MESALAZINE [Concomitant]
     Active Substance: MESALAMINE
     Indication: COLITIS ULCERATIVE

REACTIONS (2)
  - Abdominal pain upper [Recovering/Resolving]
  - Drug abuse [Recovering/Resolving]

NARRATIVE: CASE EVENT DATE: 20171201
